FAERS Safety Report 7197999 (Version 3)
Quarter: 2013Q4

REPORT INFORMATION
  Report Type: Spontaneous
  Country: US (occurrence: US)
  Receive Date: 20091203
  Receipt Date: 20131210
  Transmission Date: 20140711
  Serious: Yes (Hospitalization, Disabling, Other)
  Sender: FDA-Public Use
  Company Number: US-BAYER-200941463NA

PATIENT
  Age: 39 Year
  Sex: Female

DRUGS (17)
  1. YAZ [Suspect]
     Indication: PRODUCT USED FOR UNKNOWN INDICATION
     Dosage: UNK
     Dates: start: 2008, end: 2009
  2. YASMIN [Suspect]
     Dosage: UNK
     Dates: start: 2008, end: 2009
  3. OCELLA [Suspect]
     Dosage: UNK
     Dates: start: 2008, end: 2009
  4. RANITIDINE [Concomitant]
     Dosage: 300 MG, UNK
     Dates: start: 20090514
  5. GLYCOPYRROLATE [Concomitant]
     Dosage: UNK
     Dates: start: 20090514
  6. MAALOX [Concomitant]
     Dosage: UNK
     Dates: start: 20090514
  7. DONNATAL [Concomitant]
     Dosage: UNK
     Dates: start: 20090514
  8. PROMETHAZINE [Concomitant]
     Dosage: UNK
     Dates: start: 20090514
  9. CIPROFLOXACIN [Concomitant]
     Dosage: 500 MG, UNK
     Dates: start: 20090515
  10. PHENAZOPYRIDINE [Concomitant]
     Dosage: 200 MG, UNK
     Dates: start: 20090515
  11. TERBINAFINE [Concomitant]
     Dosage: 250 MG, UNK
     Dates: start: 20090515
  12. BENZACLIN [Concomitant]
     Dosage: UNK
     Dates: start: 20090515
  13. MINOCYCLINE [Concomitant]
     Dosage: 50 MG, UNK
     Dates: start: 20090515
  14. AZITHROMYCIN [Concomitant]
     Dosage: 250 MG, UNK
     Dates: start: 20090515
  15. METRONIDAZOL [Concomitant]
     Dosage: 0.75%, UNK
     Dates: start: 20090515
  16. NITROFURANTOIN [Concomitant]
     Dosage: UNK
     Dates: start: 20090603
  17. OXYCODONE [Concomitant]
     Dosage: UNK
     Dates: start: 20090603

REACTIONS (7)
  - Gallbladder disorder [None]
  - Cholecystitis chronic [None]
  - Pain [None]
  - Injury [None]
  - Deformity [None]
  - Anxiety [None]
  - Anhedonia [None]
